FAERS Safety Report 11904112 (Version 1)
Quarter: 2016Q1

REPORT INFORMATION
  Report Type: Report from Study
  Country: BE (occurrence: BE)
  Receive Date: 20160108
  Receipt Date: 20160108
  Transmission Date: 20160526
  Serious: Yes (Hospitalization)
  Sender: FDA-Public Use
  Company Number: BE-ABBVIE-14P-013-1239616-00

PATIENT
  Sex: Male

DRUGS (4)
  1. DUODOPA [Suspect]
     Active Substance: CARBIDOPA\LEVODOPA
     Indication: PARKINSON^S DISEASE
     Dosage: AM=6ML, CONTIN DOSE=2.5ML/H DURING 16H, EXTRA DOSE=1ML
     Route: 050
     Dates: start: 20140509, end: 20140605
  2. DUODOPA [Suspect]
     Active Substance: CARBIDOPA\LEVODOPA
     Dosage: DOSES CONTINUOUSLY MONITORED AND ADAPTED
     Route: 050
     Dates: start: 20140612, end: 20140807
  3. DUODOPA [Suspect]
     Active Substance: CARBIDOPA\LEVODOPA
     Dosage: AM=3ML; CD= 2.6ML/HR DURING 16HRS; ED=2.6ML; ND=2.6ML/HR DURING
     Route: 050
     Dates: start: 20140807
  4. DUODOPA [Suspect]
     Active Substance: CARBIDOPA\LEVODOPA
     Dosage: AM=3ML; CD=2.3ML/HR DURING 16HRS; ED=2ML; ND=2.3ML/HR DURING
     Route: 050
     Dates: start: 20140605, end: 20140612

REACTIONS (2)
  - Implantable defibrillator insertion [Unknown]
  - Chest pain [Unknown]
